FAERS Safety Report 6208350-3 (Version None)
Quarter: 2009Q2

REPORT INFORMATION
  Report Type: 
  Country: None (occurrence: None)
  Receive Date: 20090529
  Receipt Date: 20090520
  Transmission Date: 20091009
  Serious: Yes (Hospitalization)
  Sender: FDA-Public Use
  Company Number: FR-BAXTER-2008BH006102

PATIENT
  Age: 14 Year
  Sex: Male
  Weight: 93 kg

DRUGS (11)
  1. ENDOXAN BAXTER [Suspect]
     Indication: ACUTE LYMPHOCYTIC LEUKAEMIA
     Route: 042
     Dates: start: 20080510, end: 20080512
  2. GLEEVEC [Suspect]
     Indication: ACUTE LYMPHOCYTIC LEUKAEMIA
     Route: 048
     Dates: start: 20080515, end: 20080518
  3. METHOTREXATE [Suspect]
     Indication: ACUTE LYMPHOCYTIC LEUKAEMIA
     Route: 042
     Dates: start: 20080509, end: 20080509
  4. VINCRISTINE [Suspect]
     Indication: ACUTE LYMPHOCYTIC LEUKAEMIA
     Route: 042
     Dates: start: 20080509, end: 20080509
  5. VINCRISTINE [Suspect]
     Route: 042
     Dates: start: 20080514, end: 20080514
  6. ARACYTINE [Suspect]
     Indication: ACUTE LYMPHOCYTIC LEUKAEMIA
     Dosage: DOSE UNIT:UNKNOWN
     Route: 065
     Dates: start: 20080509, end: 20080509
  7. BACTRIM [Suspect]
     Indication: ACUTE LYMPHOCYTIC LEUKAEMIA
     Dosage: DOSE UNIT:UNKNOWN
     Route: 048
     Dates: start: 20080515, end: 20080518
  8. DEXAMETHASONE 4MG TAB [Concomitant]
     Indication: DRUG USE FOR UNKNOWN INDICATION
     Route: 065
     Dates: start: 20080501
  9. MESNA [Concomitant]
     Indication: DRUG USE FOR UNKNOWN INDICATION
     Route: 042
     Dates: start: 20080510, end: 20080512
  10. METHYLPREDNISOLONE [Concomitant]
     Indication: DRUG USE FOR UNKNOWN INDICATION
     Route: 065
     Dates: start: 20080509, end: 20080509
  11. ASPARAGINASE [Concomitant]
     Indication: ACUTE LYMPHOCYTIC LEUKAEMIA
     Route: 042
     Dates: start: 20080513, end: 20080514

REACTIONS (8)
  - CYTOLYTIC HEPATITIS [None]
  - DYSPNOEA [None]
  - FEBRILE BONE MARROW APLASIA [None]
  - HYPERNATRAEMIA [None]
  - HYPERTENSION [None]
  - PARALYSIS [None]
  - RENAL FAILURE [None]
  - STEVENS-JOHNSON SYNDROME [None]
